FAERS Safety Report 20850790 (Version 1)
Quarter: 2022Q2

REPORT INFORMATION
  Report Type: Spontaneous
  Country: US (occurrence: US)
  Receive Date: 20220519
  Receipt Date: 20220519
  Transmission Date: 20220720
  Serious: Yes (Other)
  Sender: FDA-Public Use
  Company Number: US-BRISTOL-MYERS SQUIBB COMPANY-2022-039417

PATIENT
  Age: 17 Year
  Sex: Male
  Weight: 69.4 kg

DRUGS (21)
  1. ABATACEPT [Suspect]
     Active Substance: ABATACEPT
     Indication: Graft versus host disease
     Dosage: 2 DOSES
     Route: 042
     Dates: start: 20220414
  2. NYSTATIN [Concomitant]
     Active Substance: NYSTATIN
     Indication: Product used for unknown indication
     Dosage: 100000 UNIT/ML SUSPENSION 400,000 UNITS
     Route: 065
  3. ACYCLOVIR [Concomitant]
     Active Substance: ACYCLOVIR
     Indication: Product used for unknown indication
     Dosage: 434 MG IN DEXTROSE 5% 62 ML (7 MG/ML) IV
     Route: 065
  4. ALTEPLASE [Concomitant]
     Active Substance: ALTEPLASE
     Indication: Product used for unknown indication
     Dosage: INJECTION 2 MG FOLLOWED BY ALTEPLASE CLINICAL BOLUS PRN
     Route: 065
  5. HYDROMORPHONE [Concomitant]
     Active Substance: HYDROMORPHONE
     Indication: Product used for unknown indication
     Dosage: BOLUS
  6. DIPHENHYDRAMINE [Concomitant]
     Active Substance: DIPHENHYDRAMINE
     Indication: Product used for unknown indication
     Route: 065
  7. DIPHENHYDRAMINE HYDROCHLORIDE\LIDOCAINE HYDROCHLORIDE\NYSTATIN [Concomitant]
     Active Substance: DIPHENHYDRAMINE HYDROCHLORIDE\LIDOCAINE HYDROCHLORIDE\NYSTATIN
     Indication: Product used for unknown indication
     Route: 065
  8. FAMOTIDINE [Concomitant]
     Active Substance: FAMOTIDINE
     Indication: Product used for unknown indication
     Route: 065
  9. GRANISETRON [Concomitant]
     Active Substance: GRANISETRON
     Indication: Product used for unknown indication
     Route: 065
  10. HEPARIN SODIUM [Concomitant]
     Active Substance: HEPARIN SODIUM
     Indication: Product used for unknown indication
     Dosage: 10 UNIT/ML INJECTION 30 UNITS
  11. HYDROPHOR [Concomitant]
     Active Substance: PETROLATUM
     Indication: Product used for unknown indication
     Route: 065
  12. KETAMINE [Concomitant]
     Active Substance: KETAMINE
     Indication: Product used for unknown indication
     Dosage: 100 MG IN SODIUM CHLORIDE 0.9 % 100 ML (1 MG/ML)
     Route: 065
  13. LEVETIRACETAM [Concomitant]
     Active Substance: LEVETIRACETAM
     Indication: Product used for unknown indication
     Dosage: 1,365 MG IN SODIUM CHLORIDE 0.9 % 91 ML (15 MG)
     Route: 065
  14. FAT EMULSION NOS [Concomitant]
     Active Substance: EGG PHOSPHOLIPIDS\SAFFLOWER OIL\SOYBEAN OIL
     Indication: Product used for unknown indication
     Dosage: 20 %  (INTRALIPID/NUTRILIPID, SOY BASED)
     Route: 065
  15. LORAZEPAM [Concomitant]
     Active Substance: LORAZEPAM
     Indication: Product used for unknown indication
     Dosage: 2 MG/ML
     Route: 065
  16. MICAFUNGIN [Concomitant]
     Active Substance: MICAFUNGIN
     Indication: Product used for unknown indication
     Dosage: 49.5 MG IN SODIUM CHLORIDE 0.9 % 33 ML (1.5 MG/ML)
     Route: 065
  17. NALOXONE [Concomitant]
     Active Substance: NALOXONE
     Indication: Product used for unknown indication
     Dosage: 400 MCG IN SODIUM CHLORIDE 0.9 % 50 ML (8 MCG/ML)
     Route: 065
  18. OLANZAPINE [Concomitant]
     Active Substance: OLANZAPINE
     Indication: Product used for unknown indication
     Route: 065
  19. PANTOPRAZOLE [Concomitant]
     Active Substance: PANTOPRAZOLE
     Indication: Product used for unknown indication
     Dosage: 40 MG/50 ML IVPB IN NS (0.8 MG/ML) (NEO/PED)
     Route: 065
  20. HYDROMORPHONE [Concomitant]
     Active Substance: HYDROMORPHONE
     Indication: Product used for unknown indication
     Dosage: 0.2 MG/ML IN SODIUM CHLORIDE 0.9% 100 ML
     Route: 065
  21. TACROLIMUS [Concomitant]
     Active Substance: TACROLIMUS
     Indication: Product used for unknown indication
     Dosage: 2.5 MG IN SODIUM CHLORIDE 0.9 % 250 ML (0.01 MG/M
     Route: 065

REACTIONS (3)
  - Pyrexia [Recovered/Resolved]
  - Acute kidney injury [Not Recovered/Not Resolved]
  - Culture positive [Unknown]

NARRATIVE: CASE EVENT DATE: 20220415
